FAERS Safety Report 13236532 (Version 2)
Quarter: 2017Q1

REPORT INFORMATION
  Report Type: Spontaneous
  Country: US (occurrence: US)
  Receive Date: 20170215
  Receipt Date: 20170322
  Transmission Date: 20170428
  Serious: No
  Sender: FDA-Public Use
  Company Number: US-PFIZER INC-2017062188

PATIENT
  Age: 6 Decade
  Sex: Male

DRUGS (1)
  1. METHYLPREDNISOLONE. [Suspect]
     Active Substance: METHYLPREDNISOLONE
     Indication: COUGH
     Dosage: 4 MG, UNK

REACTIONS (6)
  - Product use issue [Unknown]
  - Condition aggravated [Not Recovered/Not Resolved]
  - Osteoporosis [Recovered/Resolved]
  - Psoriasis [Not Recovered/Not Resolved]
  - Pain [Unknown]
  - Drug dose omission [Unknown]
